FAERS Safety Report 11690209 (Version 4)
Quarter: 2015Q4

REPORT INFORMATION
  Report Type: Spontaneous
  Country: KW (occurrence: KW)
  Receive Date: 20151102
  Receipt Date: 20151110
  Transmission Date: 20160304
  Serious: Yes (Other)
  Sender: FDA-Public Use
  Company Number: KW-NOVOPROD-468178

PATIENT
  Age: 36 Year
  Sex: Male
  Weight: 76 kg

DRUGS (3)
  1. TESTOSTERONE. [Suspect]
     Active Substance: TESTOSTERONE
     Indication: PRODUCT USED FOR UNKNOWN INDICATION
     Dosage: 250 MG, QD
     Route: 030
  2. NORDITROPIN [Suspect]
     Active Substance: SOMATROPIN
     Dosage: UNK
     Route: 058
  3. NORDITROPIN [Suspect]
     Active Substance: SOMATROPIN
     Indication: MUSCLE BUILDING THERAPY
     Dosage: 100 MG, QD
     Route: 058

REACTIONS (2)
  - Intentional product misuse [Unknown]
  - Focal segmental glomerulosclerosis [Recovering/Resolving]

NARRATIVE: CASE EVENT DATE: 2013
